FAERS Safety Report 17101414 (Version 3)
Quarter: 2020Q1

REPORT INFORMATION
  Report Type: Spontaneous
  Country: DE (occurrence: DE)
  Receive Date: 20191202
  Receipt Date: 20200113
  Transmission Date: 20200409
  Serious: Yes (Death, Hospitalization, Other)
  Sender: FDA-Public Use
  Company Number: DE-ALEXION PHARMACEUTICALS INC.-A201918595

PATIENT
  Age: 81 Year
  Sex: Female

DRUGS (5)
  1. ALBUMIN [Concomitant]
     Active Substance: ALBUMIN HUMAN
     Indication: POLYURIA
     Route: 065
  2. XIPAMIDE [Concomitant]
     Active Substance: XIPAMIDE
     Indication: POLYURIA
     Route: 065
  3. SOLIRIS [Suspect]
     Active Substance: ECULIZUMAB
     Indication: ATYPICAL HAEMOLYTIC URAEMIC SYNDROME
     Dosage: UNK, EVERY 3 WEEKS
     Route: 065
     Dates: start: 20160922
  4. FUROSEMIDE. [Concomitant]
     Active Substance: FUROSEMIDE
     Indication: POLYURIA
     Dosage: 500 MG, UNK
     Route: 065
  5. RISPERIDONE ACCORD [Concomitant]
     Indication: HALLUCINATION
     Route: 065

REACTIONS (53)
  - Infection [Fatal]
  - Enterococcal infection [Fatal]
  - Poor venous access [Unknown]
  - Complement factor decreased [Unknown]
  - Pneumonia [Unknown]
  - Hypertension [Unknown]
  - Staphylococcal sepsis [Fatal]
  - Urosepsis [Fatal]
  - Gastritis haemorrhagic [Unknown]
  - Condition aggravated [Unknown]
  - Obesity [Unknown]
  - Mitral valve calcification [Unknown]
  - Pulmonary congestion [Unknown]
  - Confusional state [Unknown]
  - Aortic valve stenosis [Unknown]
  - Left ventricular hypertrophy [Unknown]
  - Arteriosclerosis [Unknown]
  - Breath sounds abnormal [Unknown]
  - Intervertebral discitis [Unknown]
  - Blood creatinine increased [Unknown]
  - Orthopnoea [Unknown]
  - Coronary artery disease [Unknown]
  - Oophorectomy [Unknown]
  - Escherichia sepsis [Fatal]
  - Portal vein thrombosis [Unknown]
  - Duodenal ulcer haemorrhage [Unknown]
  - Platelet count decreased [Unknown]
  - Abdominal discomfort [Unknown]
  - Somnolence [Unknown]
  - Spondylitis [Unknown]
  - Constipation [Unknown]
  - Perirenal haematoma [Unknown]
  - Hysterectomy [Unknown]
  - Hyperammonaemic encephalopathy [Unknown]
  - Colon cancer [Unknown]
  - Oedema peripheral [Unknown]
  - Pleural effusion [Unknown]
  - Prosthesis implantation [Unknown]
  - Back pain [Unknown]
  - Proteinuria [Unknown]
  - Jugular vein thrombosis [Unknown]
  - Musculoskeletal pain [Unknown]
  - Gastrointestinal haemorrhage [Unknown]
  - Hypertensive crisis [Unknown]
  - General physical health deterioration [Unknown]
  - Acute kidney injury [Unknown]
  - Nephrotic syndrome [Unknown]
  - Cardiac failure [Unknown]
  - Pulmonary oedema [Unknown]
  - Nausea [Unknown]
  - Pyrexia [Unknown]
  - Dyspnoea [Unknown]
  - Decreased appetite [Unknown]

NARRATIVE: CASE EVENT DATE: 201701
